FAERS Safety Report 6744055-8 (Version None)
Quarter: 2010Q2

REPORT INFORMATION
  Report Type: 
  Country: None (occurrence: None)
  Receive Date: 20100527
  Receipt Date: 20100527
  Transmission Date: 20101027
  Serious: Yes (Hospitalization)
  Sender: FDA-Public Use
  Company Number: A0794393A

PATIENT
  Sex: Female
  Weight: 50 kg

DRUGS (5)
  1. ELTROMBOPAG [Suspect]
     Indication: THROMBOCYTOPENIA
     Dosage: 25MG PER DAY
     Route: 048
     Dates: start: 20090219
  2. PEG-INTRON [Suspect]
     Dosage: 80MCG WEEKLY
     Route: 058
     Dates: start: 20090219
  3. REBETOL [Suspect]
     Route: 048
     Dates: start: 20090219
  4. ELTROMBOPAG [Suspect]
     Dosage: 25MG PER DAY
     Route: 048
     Dates: start: 20090205, end: 20090218
  5. EPOETIN ALPHA [Concomitant]
     Dosage: 2000IU TWO TIMES PER WEEK
     Route: 058
     Dates: start: 20090611, end: 20090625

REACTIONS (6)
  - ASTHENIA [None]
  - ENCEPHALOPATHY [None]
  - HEADACHE [None]
  - HEPATIC CIRRHOSIS [None]
  - LEUKOCYTOSIS [None]
  - SPEECH DISORDER [None]
